FAERS Safety Report 4447646-2 (Version None)
Quarter: 2004Q3

REPORT INFORMATION
  Report Type: 
  Country: None (occurrence: None)
  Receive Date: 20040913
  Receipt Date: 20040901
  Transmission Date: 20050211
  Serious: Yes (Disabling)
  Sender: FDA-Public Use
  Company Number: FR-BRISTOL-MYERS SQUIBB COMPANY-12695664

PATIENT
  Age: 54 Year
  Sex: Male

DRUGS (2)
  1. ERBITUX [Suspect]
     Indication: COLORECTAL CANCER METASTATIC
     Dosage: 600 MG ON 02-JUN-04, 400 MG WEEKLY FROM 07-JUN-04, D/C ON 19-JUL-04
     Route: 042
     Dates: start: 20040602, end: 20040719
  2. CAMPTOSAR [Suspect]
     Indication: COLORECTAL CANCER METASTATIC
     Dosage: 28.5714 MG/M2 (200 MG/M2, 1 PER 1 WK)
     Route: 042
     Dates: start: 20040602, end: 20040719

REACTIONS (4)
  - ACNE [None]
  - ASTHENIA [None]
  - DIARRHOEA [None]
  - NEUROPATHY [None]
